FAERS Safety Report 16989845 (Version 1)
Quarter: 2019Q4

REPORT INFORMATION
  Report Type: Spontaneous
  Country: US (occurrence: US)
  Receive Date: 20190920
  Receipt Date: 20190920
  Transmission Date: 20200122
  Serious: Yes (Hospitalization)
  Sender: FDA-Public Use
  Company Number: None

PATIENT
  Age: 21 Year
  Sex: Female

DRUGS (7)
  1. LACTULOSE. [Concomitant]
     Active Substance: LACTULOSE
  2. VIT D [Concomitant]
     Active Substance: VITAMIN D NOS
  3. HUMIRA [Suspect]
     Active Substance: ADALIMUMAB
     Indication: CROHN^S DISEASE
     Route: 058
     Dates: start: 20170502
  4. BUDESONIDE. [Concomitant]
     Active Substance: BUDESONIDE
  5. MESALAMINE. [Concomitant]
     Active Substance: MESALAMINE
  6. NECON [Concomitant]
     Active Substance: ETHINYL ESTRADIOL\NORETHINDRONE
  7. LOW-OGESTREL [Concomitant]
     Active Substance: ETHINYL ESTRADIOL\NORGESTREL

REACTIONS (2)
  - Condition aggravated [None]
  - Therapy cessation [None]
